FAERS Safety Report 7397156-8 (Version None)
Quarter: 2011Q2

REPORT INFORMATION
  Report Type: 
  Country: None (occurrence: None)
  Receive Date: 20110406
  Receipt Date: 20110328
  Transmission Date: 20111010
  Serious: Yes (Other)
  Sender: FDA-Public Use
  Company Number: B0709566A

PATIENT

DRUGS (3)
  1. STALEVO 100 [Concomitant]
     Indication: PARKINSON'S DISEASE
     Route: 065
     Dates: start: 20050101
  2. AZILECT [Concomitant]
     Indication: PARKINSON'S DISEASE
     Route: 065
     Dates: start: 20050101
  3. REQUIP [Suspect]
     Indication: PARKINSON'S DISEASE
     Dosage: 8MG THREE TIMES PER DAY
     Route: 065
     Dates: start: 20050101

REACTIONS (12)
  - THINKING ABNORMAL [None]
  - HYPERSEXUALITY [None]
  - SLEEP DISORDER [None]
  - AGGRESSION [None]
  - BISEXUALITY [None]
  - EXHIBITIONISM [None]
  - OBSESSIVE THOUGHTS [None]
  - INCOHERENT [None]
  - CYCLOTHYMIC DISORDER [None]
  - INDIFFERENCE [None]
  - PERSONALITY CHANGE [None]
  - INTENTIONAL SELF-INJURY [None]
